FAERS Safety Report 9865197 (Version 1)
Quarter: 2014Q1

REPORT INFORMATION
  Report Type: Spontaneous
  Country: US (occurrence: US)
  Receive Date: 20140203
  Receipt Date: 20140203
  Transmission Date: 20141002
  Serious: No
  Sender: FDA-Public Use
  Company Number: US-ALLERGAN-1303554US

PATIENT
  Age: 64 Year
  Sex: Female

DRUGS (8)
  1. RESTASIS [Suspect]
     Indication: DRY EYE
     Dosage: 2 GTT, BID
     Route: 047
  2. ISOPROLOL [Concomitant]
     Indication: HYPERTENSION
     Dosage: 2.5 MG, QD
     Route: 048
  3. NEXIUM                             /01479302/ [Concomitant]
     Indication: GASTROOESOPHAGEAL REFLUX DISEASE
     Dosage: 40 MG, QD
     Route: 048
  4. PAROXETINE [Concomitant]
     Indication: ANXIETY
     Dosage: 20 MG, QD
     Route: 048
  5. CALCIUM [Concomitant]
     Indication: MINERAL SUPPLEMENTATION
     Dosage: UNK
     Route: 048
  6. TRETINOIN 0.25% [Concomitant]
     Indication: ACNE CYSTIC
     Dosage: UNK, QHS
     Route: 061
  7. REFRESH TEARS [Concomitant]
     Indication: DRY EYE
     Dosage: UNK, PRN
     Route: 047
  8. SYSTANE ULTRA [Concomitant]
     Indication: DRY EYE
     Dosage: UNK
     Route: 047

REACTIONS (8)
  - Wrong technique in drug usage process [Unknown]
  - Scleral hyperaemia [Unknown]
  - Foreign body sensation in eyes [Unknown]
  - Eye pruritus [Unknown]
  - Instillation site pain [Unknown]
  - Instillation site pain [Unknown]
  - Instillation site pain [Recovered/Resolved]
  - Vision blurred [Unknown]
